FAERS Safety Report 21676352 (Version 2)
Quarter: 2023Q1

REPORT INFORMATION
  Report Type: Spontaneous
  Country: US (occurrence: None)
  Receive Date: 20221202
  Receipt Date: 20230201
  Transmission Date: 20230418
  Serious: No
  Sender: FDA-Public Use
  Company Number: 2022A387390

PATIENT
  Age: 721 Month
  Sex: Female

DRUGS (2)
  1. BUDESONIDE\FORMOTEROL\GLYCOPYRRONIUM [Suspect]
     Active Substance: BUDESONIDE\FORMOTEROL\GLYCOPYRRONIUM
     Indication: Asthma
     Dosage: 160/9/4.8 MCG, 2 PUFFS, TWO TIMES A DAY
     Route: 055
     Dates: start: 202207
  2. SYMBICORT [Suspect]
     Active Substance: BUDESONIDE\FORMOTEROL FUMARATE DIHYDRATE
     Indication: Asthma
     Dosage: 160/4.5 MCG, 2 PUFFS, TWO TIMES A DAY
     Route: 055
     Dates: start: 2017, end: 202207

REACTIONS (11)
  - Asthma [Unknown]
  - Chronic obstructive pulmonary disease [Unknown]
  - Eye disorder [Unknown]
  - Hypersensitivity [Unknown]
  - Drug dose omission by device [Unknown]
  - Wrong technique in product usage process [Unknown]
  - Device malfunction [Unknown]
  - Product label confusion [Unknown]
  - Device use issue [Unknown]
  - Product packaging quantity issue [Unknown]
  - Device issue [Unknown]

NARRATIVE: CASE EVENT DATE: 20220701
